FAERS Safety Report 13142598 (Version 2)
Quarter: 2017Q2

REPORT INFORMATION
  Report Type: Spontaneous
  Country: US (occurrence: US)
  Receive Date: 20170124
  Receipt Date: 20170411
  Transmission Date: 20170830
  Serious: No
  Sender: FDA-Public Use
  Company Number: US-JNJFOC-20170106503

PATIENT
  Sex: Male
  Weight: 117.94 kg

DRUGS (9)
  1. FENTANYL TRANSDERMAL SYSTEM [Suspect]
     Active Substance: FENTANYL
     Indication: INTERVERTEBRAL DISC DISORDER
     Route: 062
     Dates: start: 201609, end: 201611
  2. FENTANYL TRANSDERMAL SYSTEM [Suspect]
     Active Substance: FENTANYL
     Indication: INTERVERTEBRAL DISC DISORDER
     Route: 062
     Dates: start: 201611, end: 20161228
  3. FENTANYL TRANSDERMAL SYSTEM [Suspect]
     Active Substance: FENTANYL
     Indication: BACK DISORDER
     Route: 062
     Dates: start: 20161228
  4. FENTANYL TRANSDERMAL SYSTEM [Suspect]
     Active Substance: FENTANYL
     Indication: ROTATOR CUFF SYNDROME
     Route: 062
     Dates: start: 201611, end: 20161228
  5. FENTANYL TRANSDERMAL SYSTEM [Suspect]
     Active Substance: FENTANYL
     Indication: INTERVERTEBRAL DISC DISORDER
     Route: 062
     Dates: start: 20161228
  6. FENTANYL TRANSDERMAL SYSTEM [Suspect]
     Active Substance: FENTANYL
     Indication: BACK DISORDER
     Route: 062
     Dates: start: 201611, end: 20161228
  7. FENTANYL TRANSDERMAL SYSTEM [Suspect]
     Active Substance: FENTANYL
     Indication: BACK DISORDER
     Route: 062
     Dates: start: 201609, end: 201611
  8. FENTANYL TRANSDERMAL SYSTEM [Suspect]
     Active Substance: FENTANYL
     Indication: ROTATOR CUFF SYNDROME
     Route: 062
     Dates: start: 201609, end: 201611
  9. FENTANYL TRANSDERMAL SYSTEM [Suspect]
     Active Substance: FENTANYL
     Indication: ROTATOR CUFF SYNDROME
     Route: 062
     Dates: start: 20161228

REACTIONS (5)
  - Pain [Not Recovered/Not Resolved]
  - Product adhesion issue [Unknown]
  - Wrong technique in product usage process [Unknown]
  - Underdose [Unknown]
  - Loss of personal independence in daily activities [Unknown]

NARRATIVE: CASE EVENT DATE: 2016
